FAERS Safety Report 6333290-9 (Version None)
Quarter: 2009Q3

REPORT INFORMATION
  Report Type: 
  Country: None (occurrence: None)
  Receive Date: 20090828
  Receipt Date: 20090818
  Transmission Date: 20100115
  Serious: Yes (Hospitalization, Other)
  Sender: FDA-Public Use
  Company Number: BR-ABBOTT-09P-020-0592243-00

PATIENT
  Sex: Female
  Weight: 75 kg

DRUGS (3)
  1. HUMIRA [Suspect]
     Indication: PSORIATIC ARTHROPATHY
     Route: 058
  2. DICLOFENAC SODIUM [Concomitant]
     Indication: INFLAMMATION
     Route: 048
     Dates: start: 19890101
  3. PREDNISONE TAB [Concomitant]
     Indication: PSORIATIC ARTHROPATHY
     Route: 048
     Dates: start: 19890101

REACTIONS (5)
  - DEPRESSION [None]
  - GASTRIC DISORDER [None]
  - MENISCUS LESION [None]
  - OSTEOARTHRITIS [None]
  - PAIN [None]
